FAERS Safety Report 5261264-8 (Version None)
Quarter: 2007Q1

REPORT INFORMATION
  Report Type: 
  Country: None (occurrence: None)
  Receive Date: 20070309
  Receipt Date: 20070227
  Transmission Date: 20070707
  Serious: Yes (Other)
  Sender: FDA-Public Use
  Company Number: US-PFIZER INC-2007016763

PATIENT
  Sex: Male
  Weight: 80.7 kg

DRUGS (3)
  1. CHANTIX [Suspect]
     Indication: SMOKING CESSATION THERAPY
  2. BACTRIM [Concomitant]
     Dates: start: 20070201, end: 20070201
  3. PREDNISONE [Concomitant]
     Dates: start: 20070201, end: 20070201

REACTIONS (2)
  - ANURIA [None]
  - LETHARGY [None]
